FAERS Safety Report 8326009-3 (Version None)
Quarter: 2012Q2

REPORT INFORMATION
  Report Type: 
  Country: None (occurrence: None)
  Receive Date: 20120501
  Receipt Date: 20100609
  Transmission Date: 20120825
  Serious: No
  Sender: FDA-Public Use
  Company Number: US-TEVA-2010002898

PATIENT
  Sex: Female
  Weight: 59.928 kg

DRUGS (3)
  1. MIRENA [Concomitant]
     Dates: start: 20060101
  2. TYSABRI [Suspect]
     Indication: MULTIPLE SCLEROSIS
     Dates: start: 20080101
  3. NUVIGIL [Suspect]
     Indication: FATIGUE
     Dosage: 150 MILLIGRAM;
     Route: 048
     Dates: start: 20100415

REACTIONS (1)
  - HERPES ZOSTER [None]
